FAERS Safety Report 9186029 (Version 1)
Quarter: 2013Q1

REPORT INFORMATION
  Report Type: Spontaneous
  Country: US (occurrence: None)
  Receive Date: 20120628
  Receipt Date: 20120628
  Transmission Date: 20140127
  Serious: Yes (Other)
  Sender: FDA-Public Use
  Company Number: PHEH2012US004681

PATIENT
  Age: 77 Year
  Sex: Female
  Weight: 31.07 kg

DRUGS (6)
  1. RECLAST [Suspect]
     Indication: OSTEOPOROSIS
     Dosage: 5MG/100 ML ONCE
     Dates: start: 20111103
  2. LEVOTHYROID (LEVOTHYROXINE SODIUM)TABLET [Concomitant]
  3. VITAMIN D (ERGOCALCIFEROL)TABLET [Concomitant]
  4. PLAVIX (CLOPIDOGREL SULFATE) TABLET [Suspect]
  5. HYCOSAMINE TABLET [Concomitant]
  6. CARAFATE (SUCRALFATE)TABLET [Concomitant]

REACTIONS (1)
  - Vomiting [None]
